FAERS Safety Report 13942050 (Version 3)
Quarter: 2017Q4

REPORT INFORMATION
  Report Type: Spontaneous
  Country: US (occurrence: US)
  Receive Date: 20170906
  Receipt Date: 20171128
  Transmission Date: 20180320
  Serious: Yes (Other)
  Sender: FDA-Public Use
  Company Number: US-REGENERON PHARMACEUTICALS, INC.-2017-21537

PATIENT

DRUGS (1)
  1. EYLEA [Suspect]
     Active Substance: AFLIBERCEPT
     Indication: NEOVASCULAR AGE-RELATED MACULAR DEGENERATION
     Dosage: PATIENT RECEIVED 4 DOSES PRIOR TO EVENT
     Route: 031

REACTIONS (3)
  - Hypertension [Unknown]
  - Nephrotic syndrome [Unknown]
  - Thrombotic microangiopathy [Unknown]
